FAERS Safety Report 13638646 (Version 1)
Quarter: 2017Q2

REPORT INFORMATION
  Report Type: Spontaneous
  Country: DK (occurrence: DK)
  Receive Date: 20170609
  Receipt Date: 20170609
  Transmission Date: 20170830
  Serious: Yes (Hospitalization)
  Sender: FDA-Public Use
  Company Number: DK-FRESENIUS KABI-FK201704794

PATIENT
  Age: 62 Year
  Sex: Male

DRUGS (2)
  1. OXALIPLATIN (MANUFACTURER UNKNOWN) [Suspect]
     Active Substance: OXALIPLATIN
     Indication: COLON CANCER
     Route: 042
     Dates: start: 2013, end: 2013
  2. CAPECITABINE. [Concomitant]
     Active Substance: CAPECITABINE
     Indication: COLON CANCER
     Route: 042

REACTIONS (8)
  - Erythema [Recovering/Resolving]
  - Swelling [Recovering/Resolving]
  - Soft tissue injury [Recovering/Resolving]
  - Pain [Recovering/Resolving]
  - General physical health deterioration [Recovering/Resolving]
  - Oedema [Recovering/Resolving]
  - Mobility decreased [Recovering/Resolving]
  - Body temperature fluctuation [Recovering/Resolving]
